FAERS Safety Report 7194154-4 (Version None)
Quarter: 2010Q4

REPORT INFORMATION
  Report Type: 
  Country: None (occurrence: None)
  Receive Date: 20101223
  Receipt Date: 20101015
  Transmission Date: 20110411
  Serious: No
  Sender: FDA-Public Use
  Company Number: US-AMGEN-TCS435994

PATIENT

DRUGS (2)
  1. ENBREL [Suspect]
     Indication: PSORIATIC ARTHROPATHY
     Dosage: 50 MG, QWK
     Route: 058
     Dates: start: 20100819, end: 20100902
  2. HUMIRA [Concomitant]
     Dosage: UNK
     Dates: start: 20100101

REACTIONS (3)
  - HYPERSENSITIVITY [None]
  - INFLAMMATION [None]
  - URTICARIA [None]
